FAERS Safety Report 20601254 (Version 2)
Quarter: 2022Q1

REPORT INFORMATION
  Report Type: Report from Study
  Country: PE (occurrence: PE)
  Receive Date: 20220316
  Receipt Date: 20220323
  Transmission Date: 20220423
  Serious: Yes (Hospitalization)
  Sender: FDA-Public Use
  Company Number: PE-NOVARTISPH-NVSC2022PE060540

PATIENT
  Sex: Female

DRUGS (1)
  1. TASIGNA [Suspect]
     Active Substance: NILOTINIB
     Indication: Chronic myeloid leukaemia
     Dosage: 800 MG, BID
     Route: 048
     Dates: start: 20220104

REACTIONS (3)
  - Feeling abnormal [Recovering/Resolving]
  - Peripheral swelling [Recovering/Resolving]
  - Incorrect dose administered [Unknown]
